FAERS Safety Report 12902221 (Version 1)
Quarter: 2016Q4

REPORT INFORMATION
  Report Type: Spontaneous
  Country: US (occurrence: US)
  Receive Date: 20161101
  Receipt Date: 20161101
  Transmission Date: 20170207
  Serious: Yes (Other)
  Sender: FDA-Public Use
  Company Number: None

PATIENT
  Age: 18 Year
  Sex: Female
  Weight: 74.84 kg

DRUGS (1)
  1. SKYLA [Suspect]
     Active Substance: LEVONORGESTREL
     Indication: CONTRACEPTION
     Dosage: SKYLA IUD - IUD - NOT SURE WHICH MED IT DELIVERS
     Dates: start: 20160501, end: 20161029

REACTIONS (2)
  - Pregnancy with contraceptive device [None]
  - Treatment failure [None]

NARRATIVE: CASE EVENT DATE: 20161029
